FAERS Safety Report 19249017 (Version 4)
Quarter: 2021Q4

REPORT INFORMATION
  Report Type: Spontaneous
  Country: GB (occurrence: GB)
  Receive Date: 20210512
  Receipt Date: 20211209
  Transmission Date: 20220303
  Serious: Yes (Death, Hospitalization)
  Sender: FDA-Public Use
  Company Number: GB-JNJFOC-20210505170

PATIENT
  Age: 7 Decade
  Sex: Male

DRUGS (2)
  1. TREMFYA [Suspect]
     Active Substance: GUSELKUMAB
     Indication: Pustular psoriasis
     Dosage: 16 MONTHS
     Route: 065
     Dates: start: 202001
  2. REMICADE [Suspect]
     Active Substance: INFLIXIMAB
     Indication: Pustular psoriasis
     Route: 065

REACTIONS (7)
  - Acute generalised exanthematous pustulosis [Fatal]
  - Pneumothorax [Fatal]
  - Urosepsis [Fatal]
  - Pustular psoriasis [Fatal]
  - Device defective [Fatal]
  - Off label use [Unknown]
  - Product use in unapproved indication [Unknown]

NARRATIVE: CASE EVENT DATE: 20200101
